FAERS Safety Report 9215209 (Version 1)
Quarter: 2013Q2

REPORT INFORMATION
  Report Type: Spontaneous
  Country: US (occurrence: US)
  Receive Date: 20130405
  Receipt Date: 20130405
  Transmission Date: 20140414
  Serious: Yes (Other)
  Sender: FDA-Public Use
  Company Number: US-ASTRAZENECA-2013SE20729

PATIENT
  Age: 64 Year
  Sex: Female
  Weight: 54.4 kg

DRUGS (3)
  1. NEXIUM [Suspect]
     Indication: DYSPEPSIA
     Route: 048
  2. NEXIUM [Suspect]
     Indication: HERNIA
     Route: 048
  3. CELEBREX [Concomitant]
     Indication: ARTHROPATHY
     Route: 048
     Dates: end: 201207

REACTIONS (7)
  - Joint injury [Unknown]
  - Dyspepsia [Unknown]
  - Burning sensation [Unknown]
  - Malaise [Unknown]
  - Drug ineffective [Unknown]
  - Intentional drug misuse [Unknown]
  - Off label use [Unknown]
